FAERS Safety Report 4373785-0 (Version None)
Quarter: 2004Q2

REPORT INFORMATION
  Report Type: 
  Country: None (occurrence: None)
  Receive Date: 20040607
  Receipt Date: 20040607
  Transmission Date: 20050107
  Serious: Yes (Death)
  Sender: FDA-Public Use
  Company Number: None

PATIENT
  Age: 75 Year
  Sex: Male
  Weight: 68.0396 kg

DRUGS (2)
  1. LEXAPRO [Suspect]
     Dosage: ONCE DAILY ORAL
     Route: 048
     Dates: start: 20040129, end: 20040220
  2. REMERON [Suspect]
     Dosage: 30 MG ONCE DAILY ORAL
     Route: 048
     Dates: start: 20040220, end: 20040308

REACTIONS (1)
  - COMPLETED SUICIDE [None]
